FAERS Safety Report 12891086 (Version 1)
Quarter: 2016Q4

REPORT INFORMATION
  Report Type: Spontaneous
  Country: US (occurrence: US)
  Receive Date: 20161027
  Receipt Date: 20161027
  Transmission Date: 20170207
  Serious: Yes (Hospitalization)
  Sender: FDA-Public Use
  Company Number: US-BIOGEN-2016BI00309077

PATIENT
  Sex: Male

DRUGS (1)
  1. AVONEX [Suspect]
     Active Substance: INTERFERON BETA-1A
     Indication: MULTIPLE SCLEROSIS
     Route: 065
     Dates: start: 20081001

REACTIONS (4)
  - Knee arthroplasty [Recovered/Resolved]
  - Fall [Recovered/Resolved]
  - Mobility decreased [Recovered/Resolved]
  - Urinary tract infection [Recovered/Resolved]
